FAERS Safety Report 6311844-3 (Version None)
Quarter: 2009Q3

REPORT INFORMATION
  Report Type: 
  Country: None (occurrence: None)
  Receive Date: 20090817
  Receipt Date: 20090806
  Transmission Date: 20100115
  Serious: Yes (Life-Threatening, Hospitalization)
  Sender: FDA-Public Use
  Company Number: CH-JNJFOC-20090803388

PATIENT
  Age: 79 Year
  Sex: Female

DRUGS (17)
  1. TRAMAL [Suspect]
     Indication: DRUG USE FOR UNKNOWN INDICATION
     Route: 048
  2. SUFENTA PRESERVATIVE FREE [Suspect]
     Indication: FEMUR FRACTURE
     Route: 041
  3. FENTANYL [Interacting]
     Indication: FEMUR FRACTURE
     Route: 040
  4. PROPOFOL [Interacting]
     Indication: FEMUR FRACTURE
     Route: 041
  5. MORPHINE [Interacting]
     Indication: FEMUR FRACTURE
     Route: 040
  6. MEPRONIZINE [Suspect]
     Indication: DRUG USE FOR UNKNOWN INDICATION
     Route: 048
  7. VALIUM [Suspect]
     Indication: DRUG USE FOR UNKNOWN INDICATION
     Route: 048
  8. DEROXAT [Suspect]
     Indication: DRUG USE FOR UNKNOWN INDICATION
     Route: 048
  9. TOLVON [Suspect]
     Indication: DRUG USE FOR UNKNOWN INDICATION
     Route: 048
  10. TORECAN [Suspect]
     Indication: DRUG USE FOR UNKNOWN INDICATION
     Route: 048
  11. INDERAL [Concomitant]
     Route: 065
  12. PRAVASTATIN [Concomitant]
     Route: 065
  13. BUSCOPAN [Concomitant]
     Route: 065
  14. EUTHYROX [Concomitant]
     Route: 065
  15. DIOVAN HCT [Concomitant]
     Route: 065
  16. ASPIRIN [Concomitant]
     Route: 065
  17. CONDROSULF [Concomitant]
     Route: 065

REACTIONS (5)
  - COMA [None]
  - DRUG INTERACTION [None]
  - RENAL FAILURE ACUTE [None]
  - RESPIRATORY ACIDOSIS [None]
  - RESPIRATORY FAILURE [None]
